FAERS Safety Report 10450289 (Version 3)
Quarter: 2015Q1

REPORT INFORMATION
  Report Type: Spontaneous
  Country: PT (occurrence: PT)
  Receive Date: 20140912
  Receipt Date: 20150306
  Transmission Date: 20150720
  Serious: Yes (Other)
  Sender: FDA-Public Use
  Company Number: PT-ACTAVIS-2014-19791

PATIENT
  Age: 66 Year
  Sex: Female
  Weight: 72 kg

DRUGS (5)
  1. EPIRRUBICINA ACTAVIS [Suspect]
     Active Substance: EPIRUBICIN HYDROCHLORIDE
     Indication: BREAST CANCER
     Dosage: 127.5 MG, CYCLICAL; EVERY 21 DAYS
     Route: 040
     Dates: start: 20140407, end: 20140729
  2. FLUOROURACILO ACCORD [Concomitant]
     Active Substance: FLUOROURACIL
     Indication: BREAST CANCER
     Dosage: 1.02 MG, CYCLICAL; 127.5 MG EVERY 21 DAYS
     Route: 040
     Dates: start: 20140407, end: 20140729
  3. ORADEXON [Concomitant]
     Active Substance: DEXAMETHASONE
     Indication: PREMEDICATION
     Dosage: 20 MG, CYCLICAL; EVERY 21 DAYS
     Route: 042
     Dates: start: 20140407, end: 20140729
  4. ENDOXAN                            /00021102/ [Concomitant]
     Active Substance: CYCLOPHOSPHAMIDE
     Indication: BREAST CANCER
     Dosage: 1.02 MG, CYCLICAL; EVERY 21 DAYS
     Route: 040
     Dates: start: 20140407, end: 20140729
  5. ONDANSETRON [Concomitant]
     Active Substance: ONDANSETRON
     Indication: PREMEDICATION
     Dosage: 16 MG, CYCLICAL; EVERY 21 DAYS
     Route: 042
     Dates: start: 20140407, end: 20140729

REACTIONS (1)
  - Injection site phlebitis [Unknown]

NARRATIVE: CASE EVENT DATE: 20140605
